FAERS Safety Report 5575296-3 (Version None)
Quarter: 2007Q4

REPORT INFORMATION
  Report Type: 
  Country: None (occurrence: None)
  Receive Date: 20071221
  Receipt Date: 20071217
  Transmission Date: 20080405
  Serious: Yes (Hospitalization)
  Sender: FDA-Public Use
  Company Number: 231331J07USA

PATIENT
  Age: 23 Year
  Sex: Female

DRUGS (4)
  1. REBIF [Suspect]
     Indication: MULTIPLE SCLEROSIS
     Dosage: 8.8 MCG, 3 IN 1 WEEKS, SUBCUTANEOUS; 22 MCG, 3 IN 1 WEEKS, SUBCUTANEOUS; 44  MCG, 3 IN 1 WEEKS, SUBC
     Route: 058
     Dates: start: 20071105, end: 20071118
  2. REBIF [Suspect]
     Indication: MULTIPLE SCLEROSIS
     Dosage: 8.8 MCG, 3 IN 1 WEEKS, SUBCUTANEOUS; 22 MCG, 3 IN 1 WEEKS, SUBCUTANEOUS; 44  MCG, 3 IN 1 WEEKS, SUBC
     Route: 058
     Dates: start: 20071119, end: 20071202
  3. REBIF [Suspect]
     Indication: MULTIPLE SCLEROSIS
     Dosage: 8.8 MCG, 3 IN 1 WEEKS, SUBCUTANEOUS; 22 MCG, 3 IN 1 WEEKS, SUBCUTANEOUS; 44  MCG, 3 IN 1 WEEKS, SUBC
     Route: 058
     Dates: start: 20071203
  4. BIRTH CONTROL PILL               (ORAL CONTRACEPTIVE NOS) [Concomitant]

REACTIONS (2)
  - OPTIC NEURITIS [None]
  - VISUAL DISTURBANCE [None]
